FAERS Safety Report 7923519-5 (Version None)
Quarter: 2011Q4

REPORT INFORMATION
  Report Type: 
  Country: None (occurrence: None)
  Receive Date: 20111117
  Receipt Date: 20110203
  Transmission Date: 20120403
  Serious: No
  Sender: FDA-Public Use
  Company Number: US-AMGEN-USASP2011006819

PATIENT
  Age: 31 Year
  Sex: Female

DRUGS (2)
  1. TREXALL [Concomitant]
  2. ENBREL [Suspect]
     Indication: RHEUMATOID ARTHRITIS
     Dosage: 50 MG, QWK
     Dates: start: 20090501

REACTIONS (6)
  - ARTHRALGIA [None]
  - SINUS DISORDER [None]
  - COUGH [None]
  - EXOSTOSIS [None]
  - ASTHENIA [None]
  - OROPHARYNGEAL PAIN [None]
